FAERS Safety Report 25100083 (Version 1)
Quarter: 2025Q1

REPORT INFORMATION
  Report Type: Spontaneous
  Country: US (occurrence: US)
  Receive Date: 20250320
  Receipt Date: 20250320
  Transmission Date: 20250409
  Serious: Yes (Hospitalization, Other)
  Sender: MEDICAP LABORATORIES
  Company Number: US-Medicap-000005

PATIENT
  Age: 67 Year
  Sex: Female

DRUGS (9)
  1. AMLODIPINE [Suspect]
     Active Substance: AMLODIPINE BESYLATE
     Indication: Product used for unknown indication
     Route: 065
  2. LEVOTHYROXINE [Suspect]
     Active Substance: LEVOTHYROXINE
     Indication: Product used for unknown indication
     Route: 065
  3. METOPROLOL [Suspect]
     Active Substance: METOPROLOL
     Indication: Product used for unknown indication
     Route: 065
  4. MIRTAZAPINE [Suspect]
     Active Substance: MIRTAZAPINE
     Indication: Product used for unknown indication
     Route: 065
  5. PANTOPRAZOLE [Suspect]
     Active Substance: PANTOPRAZOLE
     Indication: Product used for unknown indication
     Route: 065
  6. LEVETIRACETAM [Suspect]
     Active Substance: LEVETIRACETAM
     Indication: Product used for unknown indication
     Route: 065
  7. MELATONIN [Suspect]
     Active Substance: MELATONIN
     Indication: Product used for unknown indication
     Route: 065
  8. QUETIAPINE [Suspect]
     Active Substance: QUETIAPINE
     Indication: Product used for unknown indication
     Route: 065
  9. QUETIAPINE [Suspect]
     Active Substance: QUETIAPINE
     Indication: Product used for unknown indication
     Route: 065

REACTIONS (10)
  - Respiratory failure [Recovered/Resolved]
  - Metabolic acidosis [Recovered/Resolved]
  - Vasoplegia syndrome [Recovered/Resolved]
  - Intentional overdose [Recovered/Resolved]
  - Mental status changes [Recovered/Resolved]
  - Suicide attempt [Recovered/Resolved]
  - Lethargy [Recovered/Resolved]
  - Hypotension [Recovered/Resolved]
  - Hypoxia [Recovered/Resolved]
  - Hypercapnia [Recovered/Resolved]
